FAERS Safety Report 23469394 (Version 1)
Quarter: 2024Q1

REPORT INFORMATION
  Report Type: Spontaneous
  Country: US (occurrence: US)
  Receive Date: 20240202
  Receipt Date: 20240202
  Transmission Date: 20240409
  Serious: No
  Sender: FDA-Public Use
  Company Number: US-TARSUS PHARMACEUTICALS-TSP-US-2024-000015

PATIENT
  Age: 42 Year
  Sex: Female

DRUGS (2)
  1. XDEMVY [Suspect]
     Active Substance: LOTILANER
     Indication: Meibomian gland dysfunction
     Dosage: UNK
     Route: 065
  2. XDEMVY [Suspect]
     Active Substance: LOTILANER
     Indication: Eyelid margin crusting

REACTIONS (3)
  - Dry eye [Recovered/Resolved]
  - Myokymia [Recovered/Resolved]
  - Off label use [Unknown]
